FAERS Safety Report 14083079 (Version 1)
Quarter: 2017Q4

REPORT INFORMATION
  Report Type: Spontaneous
  Country: IT (occurrence: IT)
  Receive Date: 20171013
  Receipt Date: 20171013
  Transmission Date: 20180321
  Serious: Yes (Hospitalization)
  Sender: FDA-Public Use
  Company Number: IT-TEVA-814258ACC

PATIENT
  Age: 14 Year
  Sex: Female
  Weight: 53 kg

DRUGS (1)
  1. LITHIUM CARBONATE. [Suspect]
     Active Substance: LITHIUM CARBONATE
     Indication: MOOD ALTERED
     Dosage: 900 MILLIGRAM DAILY;
     Route: 048
     Dates: start: 20170515

REACTIONS (3)
  - Nausea [Recovered/Resolved]
  - Psychiatric symptom [Recovered/Resolved]
  - Headache [Recovered/Resolved]

NARRATIVE: CASE EVENT DATE: 20170930
